FAERS Safety Report 18136855 (Version 2)
Quarter: 2020Q4

REPORT INFORMATION
  Report Type: Report from Study
  Country: GB (occurrence: GB)
  Receive Date: 20200811
  Receipt Date: 20201029
  Transmission Date: 20210113
  Serious: No
  Sender: FDA-Public Use
  Company Number: NVSC2020GB220104

PATIENT
  Sex: Female

DRUGS (1)
  1. HYRIMOZ [Suspect]
     Active Substance: ADALIMUMAB-ADAZ
     Indication: CROHN^S DISEASE
     Dosage: 40 MG, Q2W, FORTNIGHTLY
     Route: 058
     Dates: start: 20200702

REACTIONS (5)
  - Product dose omission issue [Unknown]
  - Vomiting [Unknown]
  - Fatigue [Unknown]
  - Alopecia [Unknown]
  - Hair injury [Unknown]
